FAERS Safety Report 6906968-3 (Version None)
Quarter: 2010Q3

REPORT INFORMATION
  Report Type: 
  Country: None (occurrence: None)
  Receive Date: 20100804
  Receipt Date: 20070828
  Transmission Date: 20110219
  Serious: Yes (Other)
  Sender: FDA-Public Use
  Company Number: US-PFIZER INC-2007072100

PATIENT
  Sex: Female
  Weight: 68.027 kg

DRUGS (5)
  1. NARDIL [Suspect]
     Indication: DEPRESSION
     Route: 048
     Dates: start: 19790101
  2. NARDIL [Suspect]
     Route: 048
     Dates: start: 19790101, end: 19850101
  3. NARDIL [Suspect]
     Route: 048
     Dates: start: 19850101, end: 19920101
  4. NARDIL [Suspect]
     Route: 048
     Dates: start: 19920101
  5. ATIVAN [Concomitant]

REACTIONS (5)
  - HYPERTENSION [None]
  - JOINT SWELLING [None]
  - POST PROCEDURAL COMPLICATION [None]
  - THROAT TIGHTNESS [None]
  - WEIGHT INCREASED [None]
